FAERS Safety Report 4625488-2 (Version None)
Quarter: 2005Q2

REPORT INFORMATION
  Report Type: 
  Country: None (occurrence: None)
  Receive Date: 20050401
  Receipt Date: 20050311
  Transmission Date: 20051028
  Serious: Yes (Other)
  Sender: FDA-Public Use
  Company Number: PHEH2005US03034

PATIENT
  Age: 58 Year
  Sex: Female

DRUGS (2)
  1. ELIDEL [Suspect]
     Indication: ECZEMA
     Dosage: UNK, UNK
     Route: 061
     Dates: end: 20050310
  2. PROTOPIC [Suspect]
     Route: 061

REACTIONS (1)
  - B-CELL LYMPHOMA [None]
